FAERS Safety Report 8958031 (Version 1)
Quarter: 2012Q4

REPORT INFORMATION
  Report Type: 
  Country: US (occurrence: US)
  Receive Date: 20121211
  Receipt Date: 20121211
  Transmission Date: 20130627
  Serious: No
  Sender: FDA-Public Use
  Company Number: US-ABBOTT-12P-163-0980947-00

PATIENT
  Sex: Male
  Weight: 83.99 kg

DRUGS (8)
  1. VICODIN ES [Suspect]
     Indication: RHABDOMYOLYSIS
     Dosage: 7.5/750mg
  2. VICODIN ES [Suspect]
     Indication: MYOPATHY
  3. VICODIN [Suspect]
     Indication: MYALGIA
  4. VICODIN [Suspect]
     Indication: ASTHENIA
  5. VICODIN ES [Suspect]
     Indication: GASTROINTESTINAL PAIN
  6. LIPITOR [Concomitant]
     Indication: HYPERCHOLESTEROLAEMIA
     Dosage: 10mg daily
  7. VIAGRA [Concomitant]
     Indication: PRODUCT USED FOR UNKNOWN INDICATION
  8. ZOCOR [Concomitant]
     Indication: HYPERCHOLESTEROLAEMIA

REACTIONS (1)
  - Constipation [Unknown]
